FAERS Safety Report 6688102-0 (Version None)
Quarter: 2010Q2

REPORT INFORMATION
  Report Type: 
  Country: None (occurrence: None)
  Receive Date: 20100420
  Receipt Date: 20100414
  Transmission Date: 20101027
  Serious: Yes (Life-Threatening, Hospitalization)
  Sender: FDA-Public Use
  Company Number: CH-WYE-G05896210

PATIENT
  Age: 38 Year
  Sex: Female

DRUGS (11)
  1. PIPERACILLIN AND TAZOBACTAM [Suspect]
     Dosage: UNSPECIFIED
     Route: 051
     Dates: start: 20091101, end: 20091101
  2. CIPROFLOXACIN [Suspect]
     Dosage: DOSAGE UNSPECIFIED
     Route: 048
     Dates: start: 20091101, end: 20091101
  3. REMERON [Suspect]
     Dosage: UNSPECIFIED START DATE AND DOSE UNTIL NOV-2009
     Route: 048
  4. DIFLUCAN [Suspect]
     Dosage: UNSPECIFIED START DATE AND DOSAGE UNTIL NOV-2009
     Route: 048
  5. PREDNISONE [Suspect]
     Dosage: UNSPECIFIED START DATE AND DOSAGE UNTIL NOV-2009
     Route: 048
  6. DAFALGAN [Suspect]
     Dosage: UNSPECIFIED START DATE AND DOSAGE UNTIL NOV-2009
     Route: 048
  7. TEMESTA [Suspect]
     Dosage: UNSPECIFIED START DATE AND DOSAGE UNTIL NOV-2009
     Route: 048
  8. TAMIFLU [Suspect]
     Dosage: UNSPECIFIED START DATE AND DOSAGE UNTIL NOV-2009
     Route: 048
  9. PANTOPRAZOLE [Suspect]
     Dosage: UNKNOWN START DATE AND DOSAGE UNTIL NOV-2009
     Route: 048
  10. METHOTREXATE [Suspect]
     Dosage: UNSPECIFIED START DATE AND DOSE UNTIL NOV-2009
     Route: 048
  11. PRIMPERAN [Suspect]
     Dosage: UNSPECIFIED START DATE AND DOSAGE UNTIL NOV-2009
     Route: 048

REACTIONS (3)
  - AGRANULOCYTOSIS [None]
  - PYREXIA [None]
  - RENAL FAILURE [None]
